FAERS Safety Report 23822818 (Version 1)
Quarter: 2024Q2

REPORT INFORMATION
  Report Type: Report from Study
  Country: US (occurrence: US)
  Receive Date: 20240506
  Receipt Date: 20240506
  Transmission Date: 20240716
  Serious: Yes (Hospitalization)
  Sender: FDA-Public Use
  Company Number: US-ABBVIE-5742411

PATIENT
  Sex: Male

DRUGS (1)
  1. VENCLEXTA [Suspect]
     Active Substance: VENETOCLAX
     Indication: Myelodysplastic syndrome
     Dosage: TAKE 1 TABLET BY MOUTH DAILY WITH A MEAL AND WATER AT THE SAME TIME EACH? DAY ON DAYS 1-7 EVERY 6...
     Route: 048

REACTIONS (4)
  - Pneumonia [Unknown]
  - Off label use [Unknown]
  - Pneumonia [Recovered/Resolved]
  - Unevaluable event [Unknown]

NARRATIVE: CASE EVENT DATE: 20240101
